FAERS Safety Report 5492308-6 (Version None)
Quarter: 2007Q4

REPORT INFORMATION
  Report Type: 
  Country: None (occurrence: None)
  Receive Date: 20071022
  Receipt Date: 20071011
  Transmission Date: 20080405
  Serious: Yes (Other)
  Sender: FDA-Public Use
  Company Number: FR-GILEAD-2007-0011987

PATIENT
  Weight: 2.38 kg

DRUGS (3)
  1. TRUVADA [Suspect]
     Route: 064
     Dates: end: 20060301
  2. REYATAZ [Suspect]
     Route: 064
     Dates: end: 20060301
  3. NORVIR [Suspect]
     Route: 064
     Dates: end: 20060301

REACTIONS (1)
  - THROMBOCYTOPENIA [None]
